FAERS Safety Report 8567747 (Version 3)
Quarter: 2013Q1

REPORT INFORMATION
  Report Type: Spontaneous
  Country: US (occurrence: US)
  Receive Date: 20120517
  Receipt Date: 20130214
  Transmission Date: 20140127
  Serious: Yes (Other)
  Sender: FDA-Public Use
  Company Number: US-ELI_LILLY_AND_COMPANY-US201205003721

PATIENT
  Age: 91 Year
  Sex: Male

DRUGS (1)
  1. FORTEO [Suspect]
     Indication: OSTEOPOROSIS
     Dosage: UNK, QD

REACTIONS (7)
  - Loss of consciousness [Recovered/Resolved]
  - Fall [Recovered/Resolved]
  - Muscle twitching [Unknown]
  - Skin disorder [Unknown]
  - Scratch [Unknown]
  - Pain [Unknown]
  - Dizziness postural [Unknown]
